FAERS Safety Report 19216014 (Version 1)
Quarter: 2021Q2

REPORT INFORMATION
  Report Type: Spontaneous
  Country: US (occurrence: US)
  Receive Date: 20210505
  Receipt Date: 20210505
  Transmission Date: 20210717
  Serious: No
  Sender: FDA-Public Use
  Company Number: US-ORGANON-O2105USA000171

PATIENT
  Age: 63 Year
  Sex: Male

DRUGS (2)
  1. GOCOVRI [Concomitant]
     Active Substance: AMANTADINE
     Dosage: UNK
  2. SINEMET [Suspect]
     Active Substance: CARBIDOPA\LEVODOPA
     Dosage: UNK, REPORTED AS CAPSULES
     Route: 048

REACTIONS (2)
  - Fear [Unknown]
  - Nightmare [Unknown]

NARRATIVE: CASE EVENT DATE: 20210407
